FAERS Safety Report 6507966-4 (Version None)
Quarter: 2009Q4

REPORT INFORMATION
  Report Type: 
  Country: None (occurrence: None)
  Receive Date: 20091221
  Receipt Date: 20091215
  Transmission Date: 20100525
  Serious: Yes (Hospitalization)
  Sender: FDA-Public Use
  Company Number: B0617718A

PATIENT
  Sex: Male

DRUGS (1)
  1. AUGMENTIN [Suspect]
     Indication: BRONCHITIS
     Dosage: 2G PER DAY
     Route: 048
     Dates: start: 20090522, end: 20090526

REACTIONS (6)
  - ANXIETY [None]
  - DYSPNOEA [None]
  - GASTROINTESTINAL HYPERMOTILITY [None]
  - NAUSEA [None]
  - PARAESTHESIA [None]
  - VERTIGO [None]
